FAERS Safety Report 6414683-8 (Version None)
Quarter: 2009Q4

REPORT INFORMATION
  Report Type: 
  Country: None (occurrence: None)
  Receive Date: 20091021
  Receipt Date: 20091015
  Transmission Date: 20100525
  Serious: Yes (Other)
  Sender: FDA-Public Use
  Company Number: 2009TJ0228

PATIENT
  Age: 4 Year
  Sex: Male
  Weight: 16.3295 kg

DRUGS (2)
  1. TWINJECT 0.3 [Suspect]
     Indication: HYPERSENSITIVITY
     Dosage: 0.15 MG, AS NEEDED
     Dates: start: 20091010, end: 20091010
  2. SINGULAIR [Concomitant]

REACTIONS (2)
  - DEVICE FAILURE [None]
  - NEEDLE ISSUE [None]
